FAERS Safety Report 12319775 (Version 1)
Quarter: 2016Q2

REPORT INFORMATION
  Report Type: Spontaneous
  Country: US (occurrence: US)
  Receive Date: 20160429
  Receipt Date: 20160429
  Transmission Date: 20160815
  Serious: No
  Sender: FDA-Public Use
  Company Number: US-ROCHE-1632394

PATIENT
  Sex: Male
  Weight: 77.18 kg

DRUGS (1)
  1. ESBRIET [Suspect]
     Active Substance: PIRFENIDONE
     Indication: IDIOPATHIC PULMONARY FIBROSIS
     Dosage: THREE CAPSULE THRICE A DAY
     Route: 048
     Dates: start: 20150908

REACTIONS (10)
  - Sunburn [Unknown]
  - Headache [Unknown]
  - Rash [Unknown]
  - Pruritus [Unknown]
  - Dry skin [Unknown]
  - Fatigue [Unknown]
  - Feeling hot [Unknown]
  - Rash macular [Unknown]
  - Nausea [Unknown]
  - Abdominal discomfort [Unknown]
